FAERS Safety Report 9931387 (Version 2)
Quarter: 2014Q1

REPORT INFORMATION
  Report Type: Spontaneous
  Country: US (occurrence: US)
  Receive Date: 20140228
  Receipt Date: 20140321
  Transmission Date: 20141002
  Serious: No
  Sender: FDA-Public Use
  Company Number: US-BIOGENIDEC-2013BI124297

PATIENT
  Sex: Female

DRUGS (1)
  1. AVONEX [Suspect]
     Indication: RELAPSING-REMITTING MULTIPLE SCLEROSIS
     Route: 030
     Dates: start: 20021101, end: 20131210

REACTIONS (10)
  - Temporomandibular joint syndrome [Not Recovered/Not Resolved]
  - Drug interaction [Unknown]
  - Drug ineffective [Not Recovered/Not Resolved]
  - Pain in jaw [Not Recovered/Not Resolved]
  - Platelet count decreased [Recovered/Resolved]
  - Aphagia [Not Recovered/Not Resolved]
  - Muscle atrophy [Not Recovered/Not Resolved]
  - Pollakiuria [Recovered/Resolved]
  - Fall [Recovered/Resolved]
  - General physical health deterioration [Not Recovered/Not Resolved]
